FAERS Safety Report 7672944-9 (Version None)
Quarter: 2011Q3

REPORT INFORMATION
  Report Type: 
  Country: None (occurrence: None)
  Receive Date: 20110809
  Receipt Date: 20110804
  Transmission Date: 20111222
  Serious: Yes (Death, Hospitalization, Other)
  Sender: FDA-Public Use
  Company Number: HR-ABBOTT-11P-216-0843634-00

PATIENT
  Age: 56 Year
  Sex: Male

DRUGS (1)
  1. ZEMPLAR [Suspect]
     Indication: PRODUCT USED FOR UNKNOWN INDICATION
     Dosage: 2 TO 3 AMPULES PER WEEK
     Dates: start: 20071005, end: 20110729

REACTIONS (16)
  - VOMITING [None]
  - ANAEMIA [None]
  - HYPERPARATHYROIDISM SECONDARY [None]
  - CARDIAC FAILURE [None]
  - ABDOMINAL DISTENSION [None]
  - CHOLELITHIASIS [None]
  - RENAL FAILURE [None]
  - GASTROINTESTINAL DISORDER [None]
  - ISCHAEMIC CARDIOMYOPATHY [None]
  - AORTIC STENOSIS [None]
  - ARTERIOSCLEROSIS [None]
  - LUNG DISORDER [None]
  - HYPERTENSION [None]
  - ABDOMINAL PAIN [None]
  - DIARRHOEA [None]
  - ASCITES [None]
